FAERS Safety Report 23872370 (Version 4)
Quarter: 2024Q3

REPORT INFORMATION
  Report Type: Spontaneous
  Country: JP (occurrence: JP)
  Receive Date: 20240520
  Receipt Date: 20240704
  Transmission Date: 20241017
  Serious: Yes (Other)
  Sender: GLAXOSMITHKLINE
  Company Number: JP-GSKJP-JP2024JPN060994AA

PATIENT

DRUGS (8)
  1. DAPRODUSTAT [Suspect]
     Active Substance: DAPRODUSTAT
     Indication: Nephrogenic anaemia
     Dosage: 4 MG, QD
     Route: 048
     Dates: start: 20240509
  2. DAPRODUSTAT [Suspect]
     Active Substance: DAPRODUSTAT
     Dosage: 8 MG, QD
     Route: 048
     Dates: start: 20240514
  3. DAPRODUSTAT [Suspect]
     Active Substance: DAPRODUSTAT
     Dosage: 12 MG
     Route: 048
     Dates: start: 20240603
  4. DARBEPOETIN ALFA [Concomitant]
     Active Substance: DARBEPOETIN ALFA
     Indication: Nephrogenic anaemia
     Dosage: 240 ?G/ WEEK
     Dates: start: 20230515, end: 20240505
  5. AMLODIPINE [Concomitant]
     Active Substance: AMLODIPINE BESYLATE
     Indication: Hypertension
     Dosage: UNK
     Route: 048
  6. INDAPAMIDE [Concomitant]
     Active Substance: INDAPAMIDE
     Indication: Hypertension
     Dosage: UNK
     Route: 048
  7. INDAPAMIDE [Concomitant]
     Active Substance: INDAPAMIDE
     Indication: Cardiac failure congestive
  8. TOLVAPTAN [Concomitant]
     Active Substance: TOLVAPTAN
     Indication: Fluid retention
     Dosage: UNK
     Route: 048

REACTIONS (4)
  - Deep vein thrombosis [Recovered/Resolved]
  - Haemoglobin decreased [Not Recovered/Not Resolved]
  - Product use issue [Unknown]
  - Off label use [Unknown]

NARRATIVE: CASE EVENT DATE: 20240513
